FAERS Safety Report 7332363-1 (Version None)
Quarter: 2011Q1

REPORT INFORMATION
  Report Type: 
  Country: None (occurrence: None)
  Receive Date: 20110304
  Receipt Date: 20110301
  Transmission Date: 20110831
  Serious: Yes (Congenital Anomaly)
  Sender: FDA-Public Use
  Company Number: A0916428A

PATIENT

DRUGS (2)
  1. KALETRA [Suspect]
     Indication: ANTIVIRAL TREATMENT
     Dosage: 4TAB PER DAY
     Route: 064
     Dates: start: 20101104
  2. COMBIVIR [Suspect]
     Indication: ANTIVIRAL TREATMENT
     Dosage: 2TAB PER DAY
     Route: 064
     Dates: start: 20101104

REACTIONS (2)
  - DRUG EXPOSURE DURING PREGNANCY [None]
  - SKULL MALFORMATION [None]
